FAERS Safety Report 5707663-9 (Version None)
Quarter: 2008Q2

REPORT INFORMATION
  Report Type: 
  Country: None (occurrence: None)
  Receive Date: 20080416
  Receipt Date: 20080409
  Transmission Date: 20081010
  Serious: Yes (Hospitalization)
  Sender: FDA-Public Use
  Company Number: FI-PFIZER INC-2008031348

PATIENT
  Sex: Male

DRUGS (5)
  1. LIPITOR [Suspect]
     Indication: METABOLIC SYNDROME
     Route: 048
  2. GEMZAR [Interacting]
     Indication: PANCREATIC CARCINOMA
     Dosage: FREQ:CYCLIC
     Route: 042
     Dates: start: 20071105, end: 20080305
  3. IDOFORM [Concomitant]
     Route: 048
  4. BISOPROLOL FUMARATE [Concomitant]
     Route: 048
  5. KEFEXIN [Concomitant]
     Route: 048

REACTIONS (3)
  - DRUG INTERACTION [None]
  - OEDEMA [None]
  - RHABDOMYOLYSIS [None]
